FAERS Safety Report 5451029-6 (Version None)
Quarter: 2007Q3

REPORT INFORMATION
  Report Type: 
  Country: None (occurrence: None)
  Receive Date: 20070911
  Receipt Date: 20070831
  Transmission Date: 20080115
  Serious: Yes (Hospitalization)
  Sender: FDA-Public Use
  Company Number: SP-2007-003457

PATIENT
  Age: 83 Year
  Sex: Female
  Weight: 70 kg

DRUGS (8)
  1. OLMESARTAN MEDOXOMIL AND HYDROCHLOROTHIZIDE [Suspect]
     Indication: HYPERTENSION
     Dosage: 20/25MG (ONCE A DAY), ORAL
     Route: 048
     Dates: start: 20060607, end: 20061004
  2. ATENOLOL [Suspect]
     Indication: HYPERTENSION
     Dosage: 50 MG, (50 MG, ONCE A DAY), ORAL
     Route: 048
     Dates: start: 20060113
  3. ACETYL-DL-LEUCINE (ACETYLLEUCINE) [Concomitant]
  4. SERETIDE (SALMETEROL, FLUTICASONE) (SALMETEROL, FLUTICASONE) [Concomitant]
  5. CARBOCYSTEINE (CARBOCISTEINE) (CARBOCISTEINE) [Concomitant]
  6. TRIAMCINOLONE (TRIAMCINOLONE) (TRIAMCINOLONE) [Concomitant]
  7. LYSINE ACETYLSALICYLATE (ACETYLSALICYLATE LYSINE) (ACETYLSALICYLATE LY [Concomitant]
  8. LORAZEPAM [Concomitant]

REACTIONS (10)
  - BLOOD PARATHYROID HORMONE INCREASED [None]
  - BRAIN SCAN ABNORMAL [None]
  - BRONCHITIS [None]
  - FALL [None]
  - HYPERCALCAEMIA [None]
  - INCONTINENCE [None]
  - MALAISE [None]
  - TRANSIENT ISCHAEMIC ATTACK [None]
  - VITAMIN D DECREASED [None]
  - VOMITING [None]
